FAERS Safety Report 5414888-9 (Version None)
Quarter: 2007Q3

REPORT INFORMATION
  Report Type: 
  Country: None (occurrence: None)
  Receive Date: 20070815
  Receipt Date: 20070810
  Transmission Date: 20080115
  Serious: Yes (Hospitalization)
  Sender: FDA-Public Use
  Company Number: US-BAXTER-2007BH006599

PATIENT
  Sex: Male
  Weight: 86 kg

DRUGS (2)
  1. DIANEAL [Suspect]
     Indication: RENAL FAILURE CHRONIC
     Dosage: DOSE UNIT:UNKNOWN
     Route: 033
     Dates: start: 20060815, end: 20070701
  2. DIANEAL [Suspect]
     Indication: RENAL FAILURE CHRONIC
     Dosage: DOSE UNIT:UNKNOWN
     Route: 033
     Dates: start: 20060815, end: 20070701

REACTIONS (4)
  - DIARRHOEA [None]
  - FUNGAL PERITONITIS [None]
  - PERITONITIS BACTERIAL [None]
  - SMALL INTESTINAL OBSTRUCTION [None]
